FAERS Safety Report 8922802 (Version 1)
Quarter: 2012Q4

REPORT INFORMATION
  Report Type: Spontaneous
  Country: US (occurrence: None)
  Receive Date: 20121115
  Receipt Date: 20121115
  Transmission Date: 20130627
  Serious: Yes (Disabling)
  Sender: FDA-Public Use
  Company Number: None

PATIENT
  Age: 60 Year
  Sex: Female
  Weight: 61.24 kg

DRUGS (1)
  1. CIPROFLOXACIN HCL [Suspect]
     Indication: BLADDER INFECTION
     Dates: start: 20120730, end: 20120803

REACTIONS (2)
  - Gait disturbance [None]
  - Tendon pain [None]
